FAERS Safety Report 14262694 (Version 7)
Quarter: 2018Q2

REPORT INFORMATION
  Report Type: Report from Study
  Country: JP (occurrence: JP)
  Receive Date: 20171208
  Receipt Date: 20180420
  Transmission Date: 20180711
  Serious: Yes (Hospitalization, Other)
  Sender: FDA-Public Use
  Company Number: JP-GLAXOSMITHKLINE-JP2017185068

PATIENT
  Sex: Male
  Weight: 54 kg

DRUGS (21)
  1. ELIQUIS [Concomitant]
     Active Substance: APIXABAN
     Indication: THROMBOSIS PROPHYLAXIS
     Dosage: UNK
  2. SENNOSIDE TABLETS [Concomitant]
     Indication: DISEASE COMPLICATION
     Dosage: UNK
  3. RABEPRAZOLE SODIUM. [Concomitant]
     Active Substance: RABEPRAZOLE SODIUM
     Indication: PROPHYLAXIS AGAINST GASTROINTESTINAL ULCER
  4. MONTELUKAST SODIUM. [Concomitant]
     Active Substance: MONTELUKAST SODIUM
     Indication: DISEASE COMPLICATION
     Dosage: UNK
  5. MAGMITT TABLET [Concomitant]
     Indication: DISEASE COMPLICATION
     Dosage: UNK
  6. RABEPRAZOLE SODIUM. [Concomitant]
     Active Substance: RABEPRAZOLE SODIUM
     Indication: GASTRITIS PROPHYLAXIS
     Dosage: UNK
  7. BAYASPIRIN [Concomitant]
     Active Substance: ASPIRIN
     Indication: DISEASE COMPLICATION
     Dosage: UNK
  8. MYORELARK [Concomitant]
     Active Substance: EPERISONE HYDROCHLORIDE
     Indication: DISEASE COMPLICATION
     Dosage: UNK
  9. DIOVAN TABLETS [Concomitant]
     Indication: DISEASE COMPLICATION
     Dosage: UNK
  10. CRESTOR [Concomitant]
     Active Substance: ROSUVASTATIN CALCIUM
     Indication: DISEASE COMPLICATION
     Dosage: UNK
  11. UMECLIDINIUM BROMIDE [Suspect]
     Active Substance: UMECLIDINIUM BROMIDE
     Indication: CHRONIC OBSTRUCTIVE PULMONARY DISEASE
     Dosage: 1 DF, QD
     Route: 055
     Dates: start: 20161102
  12. FRANDOL TAPE [Concomitant]
     Active Substance: ISOSORBIDE DINITRATE
     Indication: DISEASE COMPLICATION
     Dosage: UNK
  13. MS REISHIPPU [Concomitant]
     Active Substance: CAMPHOR\MENTHOL\METHYL SALICYLATE
     Indication: DISEASE COMPLICATION
     Dosage: UNK
  14. PANALDINE [Concomitant]
     Active Substance: TICLOPIDINE HYDROCHLORIDE
     Indication: DISEASE COMPLICATION
     Dosage: UNK
  15. CARBOCISTEINE TABLETS [Concomitant]
     Active Substance: CARBOCYSTEINE
     Indication: DISEASE COMPLICATION
     Dosage: UNK
  16. AMLODIPINE BESILATE TABLET [Concomitant]
     Indication: DISEASE COMPLICATION
     Dosage: UNK
  17. MIYA-BM [Concomitant]
     Active Substance: CLOSTRIDIUM BUTYRICUM SPORES STRAIN M-55
     Indication: PROPHYLAXIS
     Dosage: UNK
  18. PLAVIX [Concomitant]
     Active Substance: CLOPIDOGREL BISULFATE
     Indication: DISEASE COMPLICATION
     Dosage: UNK
  19. EXFORGE COMBINATION TABLETS [Concomitant]
     Indication: DISEASE COMPLICATION
     Dosage: UNK
  20. PRORENAL (JAPAN) [Concomitant]
     Active Substance: LIMAPROST
     Indication: DISEASE COMPLICATION
     Dosage: UNK
  21. SYMBICORT [Concomitant]
     Active Substance: BUDESONIDE\FORMOTEROL FUMARATE DIHYDRATE
     Indication: DISEASE COMPLICATION
     Dosage: UNK

REACTIONS (7)
  - Cardiac failure [Recovered/Resolved]
  - Insomnia [Recovered/Resolved]
  - Dysuria [Unknown]
  - Hyperuricaemia [Unknown]
  - Atrial fibrillation [Recovered/Resolved]
  - Delirium [Recovered/Resolved]
  - Pharyngitis [Recovered/Resolved]

NARRATIVE: CASE EVENT DATE: 20161204
